FAERS Safety Report 9003442 (Version 2)
Quarter: 2013Q1

REPORT INFORMATION
  Report Type: Report from Study
  Country: TW (occurrence: TW)
  Receive Date: 20130108
  Receipt Date: 20130114
  Transmission Date: 20140127
  Serious: Yes (Other)
  Sender: FDA-Public Use
  Company Number: TW-MERCK-1301TWN001129

PATIENT
  Age: 62 Year
  Sex: Female
  Weight: 52 kg

DRUGS (8)
  1. BLINDED BOCEPREVIR [Suspect]
     Indication: CHRONIC HEPATITIS C
     Dosage: UNK
     Route: 048
     Dates: start: 20120504, end: 20120713
  2. BLINDED POST TRIAL THERAPY [Suspect]
     Indication: CHRONIC HEPATITIS C
     Dosage: UNK
     Route: 048
     Dates: start: 20120504, end: 20120713
  3. BLINDED PRE TRIAL THERAPY [Suspect]
     Indication: CHRONIC HEPATITIS C
     Dosage: UNK
     Route: 048
     Dates: start: 20120504, end: 20120713
  4. PEGINTERFERON ALFA-2A\RIBAVIRIN [Suspect]
     Indication: CHRONIC HEPATITIS C
     Dosage: UNK
     Route: 048
     Dates: start: 20120504, end: 20120713
  5. PEGINTERFERON ALFA-2B [Suspect]
     Indication: CHRONIC HEPATITIS C
     Dosage: UNK
     Route: 042
     Dates: start: 20120406, end: 20120706
  6. RIBAVIRIN [Suspect]
     Indication: CHRONIC HEPATITIS C
     Dosage: UNK
     Route: 048
     Dates: start: 20120406, end: 20120713
  7. NIFEHEXAL [Concomitant]
     Indication: HYPERTENSION
     Dosage: 5 MG,QD
     Route: 048
     Dates: start: 20120727
  8. BISOPROLOL [Concomitant]
     Indication: HYPERTENSION
     Dosage: 1.25MILLIGRAM,ONCE DAILY
     Route: 048
     Dates: start: 20120727

REACTIONS (1)
  - Retinal haemorrhage [Unknown]
